FAERS Safety Report 13587461 (Version 1)
Quarter: 2017Q2

REPORT INFORMATION
  Report Type: Spontaneous
  Country: US (occurrence: US)
  Receive Date: 20170526
  Receipt Date: 20170526
  Transmission Date: 20170830
  Serious: Yes (Other)
  Sender: FDA-Public Use
  Company Number: US-SHIRE-US201710598

PATIENT
  Age: 14 Year
  Sex: Male
  Weight: 33.22 kg

DRUGS (1)
  1. ELAPRASE [Suspect]
     Active Substance: IDURSULFASE
     Indication: MUCOPOLYSACCHARIDOSIS II
     Dosage: 18 MG (9ML), 1X/WEEK
     Route: 041
     Dates: start: 2012

REACTIONS (2)
  - Drug dose omission [Unknown]
  - Pyrexia [Recovered/Resolved]

NARRATIVE: CASE EVENT DATE: 20170424
